FAERS Safety Report 13995229 (Version 1)
Quarter: 2017Q3

REPORT INFORMATION
  Report Type: Spontaneous
  Country: US (occurrence: US)
  Receive Date: 20170921
  Receipt Date: 20170921
  Transmission Date: 20171128
  Serious: No
  Sender: FDA-Public Use
  Company Number: US-LUPIN PHARMACEUTICALS INC.-E2B_00006009

PATIENT
  Age: 64 Year
  Sex: Female
  Weight: 54.43 kg

DRUGS (1)
  1. CEFUROXIME AXETIL TABLETS USP, 250 MG [Suspect]
     Active Substance: CEFUROXIME AXETIL
     Indication: ARTHROPOD BITE
     Dosage: 250 MG,BID,
     Route: 048
     Dates: start: 20160803

REACTIONS (3)
  - Drug effect variable [Unknown]
  - Petechiae [Not Recovered/Not Resolved]
  - Food interaction [Unknown]

NARRATIVE: CASE EVENT DATE: 20160803
